FAERS Safety Report 5200574-7 (Version None)
Quarter: 2006Q4

REPORT INFORMATION
  Report Type: 
  Country: None (occurrence: None)
  Receive Date: 20061016
  Receipt Date: 20060520
  Transmission Date: 20070319
  Serious: Yes (Other)
  Sender: FDA-Public Use
  Company Number: 2006067947

PATIENT
  Age: 32 Year
  Sex: Female
  Weight: 63.5036 kg

DRUGS (4)
  1. NEURONTIN [Suspect]
     Indication: PAIN
     Dosage: 1 D, ORAL
     Route: 048
     Dates: start: 20060101
  2. OXYCODONE HCL [Suspect]
     Indication: PAIN
  3. VALIUM [Suspect]
     Indication: PAIN
  4. LAXATIVES [Suspect]
     Indication: ILL-DEFINED DISORDER
     Dates: end: 20060101

REACTIONS (6)
  - CONSTIPATION [None]
  - DIARRHOEA [None]
  - GASTRITIS [None]
  - PAIN [None]
  - STOMACH DISCOMFORT [None]
  - WEIGHT INCREASED [None]
